FAERS Safety Report 21204532 (Version 2)
Quarter: 2022Q3

REPORT INFORMATION
  Report Type: Spontaneous
  Country: CN (occurrence: CN)
  Receive Date: 20220812
  Receipt Date: 20220824
  Transmission Date: 20221027
  Serious: Yes (Other)
  Sender: FDA-Public Use
  Company Number: CN-SUN PHARMACEUTICAL INDUSTRIES LTD-2022R1-348290

PATIENT
  Age: 46 Year
  Sex: Female

DRUGS (2)
  1. DOCETAXEL [Suspect]
     Active Substance: DOCETAXEL
     Indication: Neurofibrosarcoma
     Dosage: 4 CYCLE
     Route: 065
  2. GEMCITABINE [Suspect]
     Active Substance: GEMCITABINE
     Indication: Neurofibrosarcoma
     Dosage: 4 CYCLE
     Route: 065

REACTIONS (3)
  - Disease progression [Unknown]
  - Disease recurrence [Unknown]
  - Drug ineffective [Unknown]
